FAERS Safety Report 6356686-8 (Version None)
Quarter: 2009Q3

REPORT INFORMATION
  Report Type: 
  Country: None (occurrence: None)
  Receive Date: 20090915
  Receipt Date: 20090908
  Transmission Date: 20100115
  Serious: Yes (Other)
  Sender: FDA-Public Use
  Company Number: BR-JNJFOC-20090703141

PATIENT
  Sex: Female

DRUGS (4)
  1. TOPAMAX [Suspect]
     Route: 048
  2. TOPAMAX [Suspect]
     Route: 048
  3. TOPAMAX [Suspect]
     Route: 048
  4. TOPAMAX [Suspect]
     Indication: AUTOSOMAL CHROMOSOME ANOMALY
     Route: 048

REACTIONS (5)
  - CONVULSION [None]
  - ILL-DEFINED DISORDER [None]
  - PHYSICAL PRODUCT LABEL ISSUE [None]
  - PRODUCT COLOUR ISSUE [None]
  - PRODUCT QUALITY ISSUE [None]
